FAERS Safety Report 4426860-6 (Version None)
Quarter: 2004Q3

REPORT INFORMATION
  Report Type: 
  Country: None (occurrence: None)
  Receive Date: 20040816
  Receipt Date: 20040804
  Transmission Date: 20050211
  Serious: Yes (Other)
  Sender: FDA-Public Use
  Company Number: PHBS2004US10559

PATIENT
  Age: 26 Year
  Sex: Male

DRUGS (1)
  1. TERBINAFINE HCL [Suspect]
     Indication: NAIL TINEA
     Dosage: 250 MG/D
     Route: 048

REACTIONS (16)
  - ABDOMINAL PAIN UPPER [None]
  - ALANINE AMINOTRANSFERASE INCREASED [None]
  - ASPARTATE AMINOTRANSFERASE INCREASED [None]
  - BLISTER [None]
  - BLOOD IRON ABNORMAL [None]
  - CHROMATURIA [None]
  - DIARRHOEA [None]
  - HAEMOGLOBIN INCREASED [None]
  - HEREDITARY HAEMOCHROMATOSIS [None]
  - HYPERTRICHOSIS [None]
  - LIVER FUNCTION TEST ABNORMAL [None]
  - PORPHYRIA NON-ACUTE [None]
  - PORPHYRINS URINE INCREASED [None]
  - SCAR [None]
  - SKIN FRAGILITY [None]
  - SKIN ULCER [None]
